FAERS Safety Report 5628508-1 (Version None)
Quarter: 2008Q1

REPORT INFORMATION
  Report Type: 
  Country: None (occurrence: None)
  Receive Date: 20080214
  Receipt Date: 20080214
  Transmission Date: 20080703
  Serious: Yes (Hospitalization)
  Sender: FDA-Public Use
  Company Number: None

PATIENT
  Age: 68 Year
  Sex: Male

DRUGS (2)
  1. LISINOPRIL [Suspect]
     Indication: HYPERTENSION
     Dosage: 20MG EVERY DAY PO
     Route: 048
     Dates: start: 20031229, end: 20080112
  2. IBUPROFEN [Suspect]
     Indication: PAIN
     Dosage: 200MG EVERY DAY PO
     Route: 048
     Dates: start: 20080105, end: 20080112

REACTIONS (1)
  - ANGIOEDEMA [None]
